FAERS Safety Report 13101497 (Version 1)
Quarter: 2017Q1

REPORT INFORMATION
  Report Type: Spontaneous
  Country: FR (occurrence: FR)
  Receive Date: 20170110
  Receipt Date: 20170110
  Transmission Date: 20170428
  Serious: Yes (Hospitalization)
  Sender: FDA-Public Use
  Company Number: FR-TEVA-727918ISR

PATIENT
  Age: 36 Year
  Sex: Female

DRUGS (5)
  1. DAFALGAN CODEINE [Suspect]
     Active Substance: ACETAMINOPHEN\CODEINE PHOSPHATE
     Indication: SCIATICA
     Route: 048
     Dates: start: 20161014, end: 20161020
  2. PANTOPRAZOLE ARROW GASTRO-RESISTANT TABLET, 40 MG [Suspect]
     Active Substance: PANTOPRAZOLE SODIUM
     Indication: PRODUCT USED FOR UNKNOWN INDICATION
     Route: 048
     Dates: start: 20161014, end: 20161020
  3. DAFALGAN [Suspect]
     Active Substance: ACETAMINOPHEN
     Indication: SCIATICA
     Dosage: 2000 MILLIGRAM DAILY;
     Route: 048
     Dates: start: 20161014, end: 20161020
  4. MOBIC [Suspect]
     Active Substance: MELOXICAM
     Route: 048
     Dates: start: 20161020, end: 20161020
  5. MOBIC [Suspect]
     Active Substance: MELOXICAM
     Indication: SCIATICA
     Route: 030
     Dates: start: 20161014, end: 20161019

REACTIONS (1)
  - Pneumothorax [Recovered/Resolved]

NARRATIVE: CASE EVENT DATE: 20161020
